FAERS Safety Report 5801775-7 (Version None)
Quarter: 2008Q3

REPORT INFORMATION
  Report Type: 
  Country: None (occurrence: None)
  Receive Date: 20080702
  Receipt Date: 20080619
  Transmission Date: 20090109
  Serious: Yes (Hospitalization, Other)
  Sender: FDA-Public Use
  Company Number: 235868J08USA

PATIENT
  Age: 67 Year
  Sex: Female
  Weight: 81.6475 kg

DRUGS (7)
  1. REBIF [Suspect]
     Indication: MULTIPLE SCLEROSIS
     Dosage: 44 MCG, 3 IN 1 WEEKS, SUBCUTANEOUS
     Route: 058
     Dates: start: 20080418
  2. WARFARIN SODIUM [Suspect]
     Indication: PALPITATIONS
     Dates: start: 20060101
  3. BACLOFEN [Suspect]
     Indication: MULTIPLE SCLEROSIS
  4. BACLOFEN [Concomitant]
  5. NEURONTIN [Concomitant]
  6. ZOCOR [Concomitant]
  7. LAVAZA (CHOLESTEROL- AND TRIGLYCERIDE REDUCERS) [Concomitant]

REACTIONS (3)
  - BLOOD COUNT ABNORMAL [None]
  - GASTRIC ULCER HAEMORRHAGE [None]
  - HAEMOGLOBIN DECREASED [None]
